FAERS Safety Report 7133126-2 (Version None)
Quarter: 2010Q4

REPORT INFORMATION
  Report Type: 
  Country: None (occurrence: None)
  Receive Date: 20101117
  Receipt Date: 20101102
  Transmission Date: 20110411
  Serious: Yes (Other)
  Sender: FDA-Public Use
  Company Number: 2010AM003330

PATIENT
  Age: 52 Year
  Sex: Female
  Weight: 101.1521 kg

DRUGS (14)
  1. SYMLIN [Suspect]
     Indication: TYPE 2 DIABETES MELLITUS
     Dosage: 60 MCG;TID;SC ; 120 MCG;TID;SC
     Route: 058
  2. SYMLIN [Suspect]
     Indication: TYPE 2 DIABETES MELLITUS
     Dosage: 60 MCG;TID;SC ; 45 MCG;TID;SC ; 30 MCG;TID;SC ; 15 MCG;TID;SC
     Route: 058
  3. SYMLIN [Suspect]
     Indication: TYPE 2 DIABETES MELLITUS
     Dosage: 60 MCG;TID;SC ; 45 MCG;TID;SC ; 30 MCG;TID;SC ; 15 MCG;TID;SC
     Route: 058
  4. SYMLIN [Suspect]
     Indication: TYPE 2 DIABETES MELLITUS
     Dosage: 60 MCG;TID;SC ; 45 MCG;TID;SC ; 30 MCG;TID;SC ; 15 MCG;TID;SC
     Route: 058
  5. COREG [Concomitant]
  6. ALDACTONE [Concomitant]
  7. CELEXA [Concomitant]
  8. LASIX [Concomitant]
  9. POTASSIUM CHLORIDE [Concomitant]
  10. GABAPENTIN [Concomitant]
  11. SIMVASTATIN [Concomitant]
  12. LISINOPRIL [Concomitant]
  13. LANTUS [Concomitant]
  14. PREV MEDS [Concomitant]

REACTIONS (3)
  - CARDIAC FAILURE [None]
  - EJECTION FRACTION DECREASED [None]
  - RESTLESS LEGS SYNDROME [None]
